FAERS Safety Report 23954384 (Version 1)
Quarter: 2024Q2

REPORT INFORMATION
  Report Type: Spontaneous
  Country: US (occurrence: None)
  Receive Date: 20240609
  Receipt Date: 20240609
  Transmission Date: 20240715
  Serious: No
  Sender: FDA-Public Use
  Company Number: US-ROCHE-3362653

PATIENT
  Sex: Male

DRUGS (1)
  1. TECENTRIQ [Suspect]
     Active Substance: ATEZOLIZUMAB
     Indication: Hepatocellular carcinoma
     Dosage: /FEB/2023 OR /MAR/2023, FREQUENCY: EVERY 3 OR 4 WEEKS
     Route: 042
     Dates: start: 2023

REACTIONS (6)
  - Swelling [Not Recovered/Not Resolved]
  - Scratch [Not Recovered/Not Resolved]
  - Weight decreased [Not Recovered/Not Resolved]
  - Feeling hot [Not Recovered/Not Resolved]
  - Chills [Not Recovered/Not Resolved]
  - Ill-defined disorder [Not Recovered/Not Resolved]
